FAERS Safety Report 23376855 (Version 1)
Quarter: 2024Q1

REPORT INFORMATION
  Report Type: Spontaneous
  Country: CO (occurrence: CO)
  Receive Date: 20240108
  Receipt Date: 20240108
  Transmission Date: 20240409
  Serious: Yes (Hospitalization, Other)
  Sender: FDA-Public Use
  Company Number: CO-GLAXOSMITHKLINE-CO2023AMR135720

PATIENT

DRUGS (1)
  1. NUCALA [Suspect]
     Active Substance: MEPOLIZUMAB
     Indication: Asthma
     Dosage: 100 MG, Q4W,INJECTION, EVERY 28 DAY
     Dates: start: 20230830

REACTIONS (14)
  - Intestinal obstruction [Unknown]
  - Cholelithiasis [Recovering/Resolving]
  - Hernia [Unknown]
  - Dyspnoea [Not Recovered/Not Resolved]
  - Nausea [Not Recovered/Not Resolved]
  - Headache [Not Recovered/Not Resolved]
  - Pallor [Not Recovered/Not Resolved]
  - Pain [Not Recovered/Not Resolved]
  - Vomiting [Not Recovered/Not Resolved]
  - Rash [Not Recovered/Not Resolved]
  - Discomfort [Not Recovered/Not Resolved]
  - Rash pruritic [Not Recovered/Not Resolved]
  - Abdominal pain upper [Not Recovered/Not Resolved]
  - Post procedural inflammation [Unknown]

NARRATIVE: CASE EVENT DATE: 20230830
